FAERS Safety Report 9146582 (Version 1)
Quarter: 2013Q1

REPORT INFORMATION
  Report Type: Spontaneous
  Country: US (occurrence: None)
  Receive Date: 20130213
  Receipt Date: 20130213
  Transmission Date: 20140127
  Serious: Yes (Death)
  Sender: FDA-Public Use
  Company Number: AXC-2013-000036

PATIENT
  Age: 87 Year
  Sex: Female

DRUGS (1)
  1. SCANDISHAKE [Suspect]
     Indication: MEDICAL DIET
     Route: 048
     Dates: start: 2012

REACTIONS (1)
  - Cardiac disorder [None]
